FAERS Safety Report 4625603-0 (Version None)
Quarter: 2005Q1

REPORT INFORMATION
  Report Type: 
  Country: None (occurrence: None)
  Receive Date: 20050331
  Receipt Date: 20050331
  Transmission Date: 20050727
  Serious: Yes (Hospitalization)
  Sender: FDA-Public Use
  Company Number: None

PATIENT
  Sex: Male
  Weight: 100.8 kg

DRUGS (8)
  1. GEFITINIB 250 MG TABS, ASTRAZENECA [Suspect]
     Indication: GLIOBLASTOMA MULTIFORME
     Dosage: 1000 MG PO QD
     Route: 048
     Dates: start: 20050311, end: 20050409
  2. RAPAMUNE [Suspect]
     Indication: GLIOBLASTOMA MULTIFORME
     Dosage: 10 MG PO QD
     Route: 048
     Dates: start: 20050311, end: 20050409
  3. PRILOSEC [Concomitant]
  4. CARBATROL [Concomitant]
  5. EFFEXOR [Concomitant]
  6. MINOCYLCIN [Concomitant]
  7. DECADRON [Concomitant]
  8. MULTI-VITAMIN [Concomitant]

REACTIONS (8)
  - BACK PAIN [None]
  - BRONCHOPULMONARY DISEASE [None]
  - CREPITATIONS [None]
  - HAEMOPTYSIS [None]
  - LUNG ABSCESS [None]
  - LUNG INFILTRATION [None]
  - PULMONARY EMBOLISM [None]
  - PYREXIA [None]
